FAERS Safety Report 4340211-7 (Version None)
Quarter: 2004Q1

REPORT INFORMATION
  Report Type: 
  Country: None (occurrence: None)
  Receive Date: 20040329
  Receipt Date: 20040206
  Transmission Date: 20041129
  Serious: No
  Sender: FDA-Public Use
  Company Number: 04P-163-0249535-00

PATIENT
  Age: 63 Year
  Sex: Female
  Weight: 60.782 kg

DRUGS (5)
  1. HUMIRA [Suspect]
     Indication: RHEUMATOID ARTHRITIS
     Dosage: 40 MG, 1 IN 2 WK, SUBCUTANEOUS
     Route: 058
     Dates: start: 20030101
  2. PREDNISONE [Concomitant]
  3. BENCAR [Concomitant]
  4. METOPROLOL SUCCINATE [Concomitant]
  5. CONJUGATED ESTROGEN [Concomitant]

REACTIONS (5)
  - INFLUENZA [None]
  - INJECTION SITE BURNING [None]
  - INJECTION SITE PRURITUS [None]
  - INJECTION SITE SWELLING [None]
  - RASH GENERALISED [None]
